FAERS Safety Report 20452390 (Version 1)
Quarter: 2022Q1

REPORT INFORMATION
  Report Type: Spontaneous
  Country: ES (occurrence: ES)
  Receive Date: 20220210
  Receipt Date: 20220210
  Transmission Date: 20220423
  Serious: Yes (Other)
  Sender: FDA-Public Use
  Company Number: ES-LUOXINA-LUOX-PHC-2022-FEB-08-LIT-0004

PATIENT
  Age: 61 Year
  Sex: Male

DRUGS (1)
  1. TOBRAMYCIN [Suspect]
     Active Substance: TOBRAMYCIN
     Indication: Product used for unknown indication
     Dosage: 300 MG/12 HOURS
     Route: 065
     Dates: start: 202108

REACTIONS (1)
  - Chronic kidney disease [Recovered/Resolved]
